FAERS Safety Report 4962399-7 (Version None)
Quarter: 2006Q2

REPORT INFORMATION
  Report Type: 
  Country: None (occurrence: None)
  Receive Date: 20060404
  Receipt Date: 20060324
  Transmission Date: 20061013
  Serious: Yes (Hospitalization)
  Sender: FDA-Public Use
  Company Number: CA-AMGEN-US169035

PATIENT
  Sex: Female

DRUGS (18)
  1. ARANESP [Suspect]
     Indication: DIALYSIS
     Route: 042
     Dates: start: 20040901
  2. CELLCEPT [Concomitant]
  3. PREDNISONE [Concomitant]
  4. FOLIC ACID [Concomitant]
  5. ATORVASTATIN CALCIUM [Concomitant]
     Route: 048
  6. BACLOFEN [Concomitant]
     Route: 048
  7. CALCITRIOL [Concomitant]
  8. CARBAMAZEPINE [Concomitant]
     Route: 048
  9. DILTIAZEM [Concomitant]
     Route: 048
  10. DOMPERIDONE [Concomitant]
  11. DOXAZOSIN [Concomitant]
     Route: 048
  12. FUROSEMIDE [Concomitant]
  13. HUMULIN 70/30 [Concomitant]
  14. LOSEC [Concomitant]
     Route: 048
  15. NORVASC [Concomitant]
     Route: 048
  16. RAMIPRIL [Concomitant]
  17. RANITIDINE [Concomitant]
  18. TUMS [Concomitant]

REACTIONS (3)
  - ANAEMIA [None]
  - HOSPITALISATION [None]
  - OESOPHAGITIS [None]
